FAERS Safety Report 5704071-1 (Version None)
Quarter: 2008Q2

REPORT INFORMATION
  Report Type: 
  Country: None (occurrence: None)
  Receive Date: 20080414
  Receipt Date: 20080403
  Transmission Date: 20081010
  Serious: Yes (Other)
  Sender: FDA-Public Use
  Company Number: US-JNJFOC-20080401845

PATIENT
  Sex: Male
  Weight: 63.5 kg

DRUGS (9)
  1. DURAGESIC-100 [Suspect]
     Route: 062
  2. DURAGESIC-100 [Suspect]
     Route: 062
  3. DURAGESIC-100 [Suspect]
     Route: 062
  4. DURAGESIC-100 [Suspect]
     Indication: SPINAL FRACTURE
     Route: 062
  5. SOMA [Concomitant]
     Indication: PAIN
     Route: 048
  6. DILANTIN [Concomitant]
     Indication: CONVULSION
     Route: 048
  7. DEPAKOTE [Concomitant]
     Indication: CONVULSION
     Dosage: AT NIGHT
     Route: 048
  8. RISPERDAL CONSTA [Concomitant]
     Indication: SCHIZOPHRENIA, PARANOID TYPE
     Route: 030
  9. TYLENOL W/ CODEINE NO. 4 [Concomitant]
     Indication: BACK PAIN
     Route: 048

REACTIONS (3)
  - SCHIZOPHRENIA, PARANOID TYPE [None]
  - TREATMENT NONCOMPLIANCE [None]
  - WITHDRAWAL SYNDROME [None]
